FAERS Safety Report 9308134 (Version 1)
Quarter: 2013Q2

REPORT INFORMATION
  Report Type: Spontaneous
  Country: JP (occurrence: JP)
  Receive Date: 20130524
  Receipt Date: 20130524
  Transmission Date: 20140414
  Serious: Yes (Hospitalization, Other)
  Sender: FDA-Public Use
  Company Number: JP-PFIZER INC-2013133058

PATIENT
  Age: 42 Year
  Sex: Female

DRUGS (7)
  1. SOLANAX [Suspect]
     Dosage: 0.4 MG, 2X/DAY (AFTER BREAKFAST AND DINNER)
     Route: 048
  2. SOLANAX [Suspect]
     Dosage: 76 (0.4 MG TABLET) TABLETS
     Route: 048
     Dates: start: 20130424, end: 201304
  3. YAZ [Concomitant]
     Dosage: 1 DF, 1X/DAY AFTER LUNCH
     Route: 048
  4. TOLEDOMIN [Concomitant]
     Dosage: 25 MG, 1X/DAY AFTER BREAKFAST
     Route: 048
  5. ATELEC [Concomitant]
     Dosage: 10 MG, 1X/DAY AFTER BREAKFAST
     Route: 048
  6. SEROQUEL [Concomitant]
     Dosage: 25 MG, 1X/DAY BEFORE SLEEP
     Route: 048
  7. AMOBAN [Concomitant]
     Dosage: 7.5 MG, 1X/DAY BEFORE SLEEP
     Route: 048

REACTIONS (5)
  - Overdose [Recovered/Resolved]
  - Loss of consciousness [Recovered/Resolved]
  - Toxicity to various agents [Recovered/Resolved]
  - Pneumonia [Unknown]
  - Urinary incontinence [Unknown]
